FAERS Safety Report 6033233-1 (Version None)
Quarter: 2008Q4

REPORT INFORMATION
  Report Type: 
  Country: None (occurrence: None)
  Receive Date: 20081224
  Receipt Date: 20081111
  Transmission Date: 20090506
  Serious: No
  Sender: FDA-Public Use
  Company Number: 2008PV037102

PATIENT
  Age: 51 Year
  Sex: Female

DRUGS (5)
  1. SYMLIN [Suspect]
     Indication: DRUG USE FOR UNKNOWN INDICATION
     Dosage: 60 MCG;TID;SC; 45 MCG;TID;SC; 30 MCG;TID;SC; 15 MCG;TID;SC
     Route: 058
     Dates: start: 20070101, end: 20070101
  2. SYMLIN [Suspect]
     Indication: DRUG USE FOR UNKNOWN INDICATION
     Dosage: 60 MCG;TID;SC; 45 MCG;TID;SC; 30 MCG;TID;SC; 15 MCG;TID;SC
     Route: 058
     Dates: start: 20070101, end: 20070101
  3. SYMLIN [Suspect]
     Indication: DRUG USE FOR UNKNOWN INDICATION
     Dosage: 60 MCG;TID;SC; 45 MCG;TID;SC; 30 MCG;TID;SC; 15 MCG;TID;SC
     Route: 058
     Dates: start: 20070101, end: 20070101
  4. SYMLIN [Suspect]
     Indication: DRUG USE FOR UNKNOWN INDICATION
     Dosage: 60 MCG;TID;SC; 45 MCG;TID;SC; 30 MCG;TID;SC; 15 MCG;TID;SC
     Route: 058
     Dates: start: 20070101, end: 20070101
  5. SYNTHROID [Concomitant]

REACTIONS (2)
  - CATARACT [None]
  - CONTACT LENS COMPLICATION [None]
